FAERS Safety Report 15004236 (Version 2)
Quarter: 2018Q2

REPORT INFORMATION
  Report Type: Spontaneous
  Country: US (occurrence: US)
  Receive Date: 20180613
  Receipt Date: 20180627
  Transmission Date: 20180711
  Serious: No
  Sender: FDA-Public Use
  Company Number: US-PFIZER INC-2018235419

PATIENT
  Age: 66 Year
  Sex: Female
  Weight: 57.15 kg

DRUGS (2)
  1. ADVIL [Suspect]
     Active Substance: IBUPROFEN
     Dosage: 600 MG, UNK (THREE TABLETS AT NIGHT BEFORE BED)
     Route: 048
     Dates: start: 20180605, end: 20180605
  2. ADVIL [Suspect]
     Active Substance: IBUPROFEN
     Indication: PAIN
     Dosage: 400 MG, UNK (TWO TABLETS AT NIGHT BEFORE BED)
     Route: 048
     Dates: start: 20180604, end: 20180604

REACTIONS (2)
  - Drug ineffective [Unknown]
  - Intentional product use issue [Not Recovered/Not Resolved]

NARRATIVE: CASE EVENT DATE: 20180604
